FAERS Safety Report 9152504 (Version 1)
Quarter: 2013Q1

REPORT INFORMATION
  Report Type: Spontaneous
  Country: US (occurrence: US)
  Receive Date: 20130308
  Receipt Date: 20130308
  Transmission Date: 20140127
  Serious: No
  Sender: FDA-Public Use
  Company Number: US-MUTUAL PHARMACEUTICAL COMPANY, INC.-ALLP20130001

PATIENT
  Sex: Female

DRUGS (3)
  1. ALLOPURINOL [Suspect]
     Indication: GOUT
     Route: 065
  2. COLCRYS [Suspect]
     Indication: GOUT
     Route: 065
  3. INDOMETHACIN [Suspect]
     Indication: GOUT
     Route: 065

REACTIONS (1)
  - Drug ineffective [Unknown]
